FAERS Safety Report 12776764 (Version 1)
Quarter: 2016Q3

REPORT INFORMATION
  Report Type: Spontaneous
  Country: FR (occurrence: FR)
  Receive Date: 20160923
  Receipt Date: 20160923
  Transmission Date: 20161109
  Serious: Yes (Other)
  Sender: FDA-Public Use
  Company Number: FR-PFIZER INC-2016439013

PATIENT
  Age: 31 Year
  Sex: Female

DRUGS (2)
  1. SOLU-MEDROL [Suspect]
     Active Substance: METHYLPREDNISOLONE SODIUM SUCCINATE
     Indication: MULTIPLE SCLEROSIS
     Dosage: 1 G, MONTHLY
     Route: 042
     Dates: start: 20160303, end: 20160701
  2. COPAXONE [Suspect]
     Active Substance: GLATIRAMER ACETATE
     Indication: MULTIPLE SCLEROSIS
     Dosage: 1 DF, 1X/DAY
     Route: 058
     Dates: start: 201511, end: 20160726

REACTIONS (1)
  - Hepatitis [Unknown]

NARRATIVE: CASE EVENT DATE: 201605
